FAERS Safety Report 19610276 (Version 2)
Quarter: 2022Q3

REPORT INFORMATION
  Report Type: Spontaneous
  Country: US (occurrence: US)
  Receive Date: 20210726
  Receipt Date: 20220902
  Transmission Date: 20221027
  Serious: No
  Sender: FDA-Public Use
  Company Number: US-ORGANON-O2107USA001831

PATIENT
  Sex: Female

DRUGS (3)
  1. DIPROLENE [Suspect]
     Active Substance: BETAMETHASONE DIPROPIONATE
     Indication: Erythema annulare
     Dosage: UNK
  2. PEMBROLIZUMAB [Concomitant]
     Active Substance: PEMBROLIZUMAB
     Dosage: UNK
  3. IPILIMUMAB [Concomitant]
     Active Substance: IPILIMUMAB
     Dosage: UNK

REACTIONS (1)
  - Product prescribing issue [Unknown]
